FAERS Safety Report 6305798-3 (Version None)
Quarter: 2009Q3

REPORT INFORMATION
  Report Type: 
  Country: None (occurrence: None)
  Receive Date: 20090812
  Receipt Date: 20071114
  Transmission Date: 20100115
  Serious: Yes (Hospitalization, Other)
  Sender: FDA-Public Use
  Company Number: US-ASTRAZENECA-2007UW15775

PATIENT
  Age: 45 Year
  Sex: Female
  Weight: 93.9 kg

DRUGS (24)
  1. SEROQUEL [Suspect]
     Indication: SLEEP DISORDER
     Dosage: 600-800 MG
     Route: 048
     Dates: start: 19970101, end: 20060501
  2. SEROQUEL [Suspect]
     Indication: BIPOLAR DISORDER
     Dosage: 600-800 MG
     Route: 048
     Dates: start: 19970101, end: 20060501
  3. SEROQUEL [Suspect]
     Indication: SCHIZOPHRENIA
     Dosage: 600-800 MG
     Route: 048
     Dates: start: 19970101, end: 20060501
  4. SEROQUEL [Suspect]
     Dosage: 100 MG TO 800 MG
     Route: 048
     Dates: start: 19991026, end: 20060501
  5. SEROQUEL [Suspect]
     Dosage: 100 MG TO 800 MG
     Route: 048
     Dates: start: 19991026, end: 20060501
  6. SEROQUEL [Suspect]
     Dosage: 100 MG TO 800 MG
     Route: 048
     Dates: start: 19991026, end: 20060501
  7. HALDOL [Concomitant]
  8. OMEPRAZOLE [Concomitant]
     Route: 048
     Dates: start: 19991026
  9. ZOCOR [Concomitant]
     Indication: BLOOD CHOLESTEROL
     Dosage: 40 MG TO 80 MG
     Route: 048
     Dates: start: 19991026
  10. TRAZODONE HCL [Concomitant]
     Dosage: 50 TO 300 MG
     Route: 048
     Dates: start: 19991026
  11. LITHIUM CARBONATE [Concomitant]
     Dosage: 600 MG TO 900 MG
     Route: 048
     Dates: start: 20000808
  12. KLONOPIN [Concomitant]
     Route: 048
     Dates: start: 20000808
  13. DEPAKOTE [Concomitant]
     Route: 048
     Dates: start: 20000808
  14. WELLBUTRIN [Concomitant]
     Route: 048
     Dates: start: 20000808
  15. CHLORAL HYDRATE [Concomitant]
     Dosage: 500 MG TWO TEASPOONS AT NIGHT AS NEEDED
     Route: 048
     Dates: start: 20000808
  16. PROLIXIN [Concomitant]
     Dosage: 5 MG Q. NOON AND Q. AT NIGHT
     Route: 048
     Dates: start: 20021009
  17. DEPAKENE [Concomitant]
     Dosage: 250 MG EVERY MORNING AND 1000 MG EVERY NIGHT
     Route: 048
     Dates: start: 20021009
  18. ALTACE [Concomitant]
     Route: 048
     Dates: start: 20021009
  19. ASPIRIN [Concomitant]
     Route: 048
     Dates: start: 20040513
  20. PLAVIX [Concomitant]
     Route: 048
     Dates: start: 20040513
  21. CLONIDINE [Concomitant]
     Route: 048
     Dates: start: 20040513
  22. ZOLOFT [Concomitant]
     Route: 048
     Dates: start: 20040513
  23. AVANDIA [Concomitant]
     Dosage: 4 MG DAILY, 4 MG TWICE DAILY FLUCTUATING
     Route: 048
     Dates: start: 20040513
  24. LISINOPRIL [Concomitant]
     Dosage: 10 MG TO 40 MG
     Route: 048
     Dates: start: 20040513

REACTIONS (7)
  - DIABETIC COMA [None]
  - DIABETIC GASTROPARESIS [None]
  - HYPERGLYCAEMIA [None]
  - NEUROPATHY PERIPHERAL [None]
  - PANCREATITIS ACUTE [None]
  - PANCREATITIS CHRONIC [None]
  - TYPE 2 DIABETES MELLITUS [None]
